FAERS Safety Report 4460038-5 (Version None)
Quarter: 2004Q3

REPORT INFORMATION
  Report Type: 
  Country: None (occurrence: None)
  Receive Date: 20040928
  Receipt Date: 20030930
  Transmission Date: 20050211
  Serious: No
  Sender: FDA-Public Use
  Company Number: US-GLAXOSMITHKLINE-A0428035A

PATIENT
  Age: 54 Year
  Sex: Male

DRUGS (4)
  1. SALMETEROL XINAFOATE [Suspect]
     Indication: ASTHMA
     Dosage: 1PUFF TWICE PER DAY
     Route: 055
     Dates: start: 20030916
  2. BLOOD PRESSURE MEDICATION [Concomitant]
  3. FLOVENT [Concomitant]
  4. ALBUTEROL [Concomitant]

REACTIONS (1)
  - ASTHMA [None]
